FAERS Safety Report 5228086-5 (Version None)
Quarter: 2007Q1

REPORT INFORMATION
  Report Type: 
  Country: None (occurrence: None)
  Receive Date: 20061201
  Receipt Date: 20061006
  Transmission Date: 20070707
  Serious: No
  Sender: FDA-Public Use
  Company Number: US200610000213

PATIENT
  Age: 74 Year
  Sex: Male

DRUGS (3)
  1. CYMBALTA [Suspect]
     Indication: DIABETIC NEUROPATHY
     Dosage: 30 MG, DAILY (1/D)
  2. EX-LAX EX-LAX INC (YELLOW PHENOLPHTHALEIN) [Concomitant]
  3. MIRALEX (MACROGOL) [Concomitant]

REACTIONS (6)
  - ABDOMINAL DISCOMFORT [None]
  - BOWEL MOVEMENT IRREGULARITY [None]
  - CONSTIPATION [None]
  - EARLY MORNING AWAKENING [None]
  - NAUSEA [None]
  - VOMITING [None]
